FAERS Safety Report 14128710 (Version 2)
Quarter: 2017Q4

REPORT INFORMATION
  Report Type: Spontaneous
  Country: ZA (occurrence: ZA)
  Receive Date: 20171026
  Receipt Date: 20171116
  Transmission Date: 20180321
  Serious: Yes (Hospitalization)
  Sender: FDA-Public Use
  Company Number: ZA-NOVOPROD-568432

PATIENT
  Age: 46 Year
  Sex: Female

DRUGS (1)
  1. ESTROFEM [Suspect]
     Active Substance: ESTRADIOL CYPIONATE
     Indication: HORMONE REPLACEMENT THERAPY
     Dosage: UNK (4-5 YEARS AGO)
     Route: 065

REACTIONS (1)
  - Pneumonia viral [Not Recovered/Not Resolved]

NARRATIVE: CASE EVENT DATE: 20171007
